FAERS Safety Report 4384813-0 (Version None)
Quarter: 2004Q2

REPORT INFORMATION
  Report Type: 
  Country: None (occurrence: None)
  Receive Date: 20040621
  Receipt Date: 20040614
  Transmission Date: 20050107
  Serious: Yes (Death)
  Sender: FDA-Public Use
  Company Number: RB-750-2004

PATIENT
  Sex: Female

DRUGS (3)
  1. BUPRENORPHINE HYDROCHLORIDE [Suspect]
     Indication: DRUG DEPENDENCE
     Dosage: SL
     Route: 060
     Dates: start: 20031211, end: 20031211
  2. METHADONE HCL [Suspect]
     Indication: DRUG DEPENDENCE
     Dosage: PO
     Route: 048
  3. ALCOHOL [Suspect]

REACTIONS (1)
  - OVERDOSE [None]
